FAERS Safety Report 17670914 (Version 2)
Quarter: 2020Q2

REPORT INFORMATION
  Report Type: Spontaneous
  Country: US (occurrence: US)
  Receive Date: 20200415
  Receipt Date: 20200417
  Transmission Date: 20200713
  Serious: Yes (Death, Other)
  Sender: FDA-Public Use
  Company Number: US-PFIZER INC-2020150208

PATIENT
  Age: 48 Year
  Sex: Male
  Weight: 77 kg

DRUGS (14)
  1. LIDOCAINE HCL [Suspect]
     Active Substance: LIDOCAINE HYDROCHLORIDE
     Dosage: UNK INFUSION (SLOWED, 3.3 MG/MIN (43 UG/KG/MIN)
     Route: 042
  2. DIGOXIN. [Concomitant]
     Active Substance: DIGOXIN
     Indication: ATRIAL FIBRILLATION
     Dosage: 0.5 MG, UNK (TWO HOURS AFTER ADMISSION)TOTAL DOSE: 1.25 MG)
     Route: 030
  3. LIDOCAINE HCL [Suspect]
     Active Substance: LIDOCAINE HYDROCHLORIDE
     Dosage: 80 UNK, TWO DOSES EACH (1.4 MG/KG BODY WEIGHT)
     Route: 042
  4. LIDOCAINE HCL [Suspect]
     Active Substance: LIDOCAINE HYDROCHLORIDE
     Dosage: UNK INFUSION (6.7 MG/MIN (86 UG/KG/MIN) FOR 30 MINUTES)
     Route: 042
  5. ATROPINE. [Concomitant]
     Active Substance: ATROPINE
     Indication: VENTRICULAR TACHYCARDIA
     Dosage: UNK (3.0 MG DURING THE FIRST 24 HOURS)
     Route: 042
  6. MEPERIDINE HYDROCHLORIDE. [Concomitant]
     Active Substance: MEPERIDINE HYDROCHLORIDE
     Dosage: 175 MG, UNK
  7. LIDOCAINE HCL [Suspect]
     Active Substance: LIDOCAINE HYDROCHLORIDE
     Dosage: 80 UNK, TWO DOSES EACH (1.4 MG/KG BODY WEIGHT)
     Route: 042
  8. DIGOXIN. [Concomitant]
     Active Substance: DIGOXIN
     Indication: ATRIAL FIBRILLATION
     Dosage: 0.25 MG, UNK (EACH 7, 11, AND 24 HOURS, TOTAL DOSE: 1.25 MG)
     Route: 048
  9. POTASSIUM CHLORIDE. [Concomitant]
     Active Substance: POTASSIUM CHLORIDE
     Dosage: UNK (INFUSION)
  10. LIDOCAINE HCL [Suspect]
     Active Substance: LIDOCAINE HYDROCHLORIDE
     Indication: VENTRICULAR TACHYCARDIA
     Dosage: 1000 MG, UNK (50 ML OF 2% LIDOCAINE)
     Route: 042
  11. LIDOCAINE HCL [Suspect]
     Active Substance: LIDOCAINE HYDROCHLORIDE
     Dosage: 2 G, UNK INFUSION (IN 500 ML OF 5% DEXTROSE IN WATER, AT A RATE OF 3.3 MG/MIN (43 UG/KG/MIN))
     Route: 042
  12. LIDOCAINE HCL [Suspect]
     Active Substance: LIDOCAINE HYDROCHLORIDE
     Dosage: UNK (INFUSION,INCREASED AGAIN TO 6.7 MG/MIN (86 UG/KG/MIN)
     Route: 042
  13. PHENOBARBITAL. [Concomitant]
     Active Substance: PHENOBARBITAL
     Dosage: 210 MG, UNK
  14. HYDROMORPHONE [Concomitant]
     Active Substance: HYDROMORPHONE
     Dosage: 2 MG, UNK

REACTIONS (7)
  - Cardio-respiratory arrest [Fatal]
  - Confusional state [Fatal]
  - Petit mal epilepsy [Fatal]
  - Generalised tonic-clonic seizure [Fatal]
  - Euphoric mood [Fatal]
  - Muscle twitching [Fatal]
  - Accidental overdose [Fatal]
